FAERS Safety Report 13553789 (Version 2)
Quarter: 2017Q2

REPORT INFORMATION
  Report Type: Report from Study
  Country: VE (occurrence: VE)
  Receive Date: 20170517
  Receipt Date: 20170525
  Transmission Date: 20170830
  Serious: Yes (Other)
  Sender: FDA-Public Use
  Company Number: PHHY2017VE070584

PATIENT
  Sex: Female
  Weight: 52.3 kg

DRUGS (3)
  1. MODURETIC 5-50 [Concomitant]
     Active Substance: AMILORIDE HYDROCHLORIDE\HYDROCHLOROTHIAZIDE
     Indication: BLOOD PRESSURE MEASUREMENT
     Dosage: 5 MG, QD
     Route: 065
     Dates: start: 2010
  2. ATORVASTATIN [Concomitant]
     Active Substance: ATORVASTATIN
     Indication: BLOOD CHOLESTEROL INCREASED
     Dosage: 20 MG, QD (EVERY NIGHT)
     Route: 065
  3. TASIGNA [Suspect]
     Active Substance: NILOTINIB
     Indication: CHRONIC MYELOID LEUKAEMIA
     Dosage: 2 DF, BID (800 MG)
     Route: 048
     Dates: start: 20130810

REACTIONS (8)
  - Blast crisis in myelogenous leukaemia [Unknown]
  - Memory impairment [Unknown]
  - Chikungunya virus infection [Unknown]
  - Tendon pain [Unknown]
  - Pain in extremity [Unknown]
  - Pain [Unknown]
  - Rheumatoid arthritis [Unknown]
  - Bone pain [Unknown]
